FAERS Safety Report 17063255 (Version 1)
Quarter: 2019Q4

REPORT INFORMATION
  Report Type: Spontaneous
  Country: US (occurrence: US)
  Receive Date: 20191122
  Receipt Date: 20191122
  Transmission Date: 20200122
  Serious: Yes (Other)
  Sender: FDA-Public Use
  Company Number: US-MICRO LABS LIMITED-ML2019-03011

PATIENT

DRUGS (1)
  1. CLINDAMYCIN HYDROCHLORIDE CAPSULES USP, 300 MG [Suspect]
     Active Substance: CLINDAMYCIN HYDROCHLORIDE
     Indication: TOOTH EXTRACTION
     Route: 048
     Dates: start: 20191021

REACTIONS (4)
  - Pruritus [Recovered/Resolved]
  - Skin exfoliation [Unknown]
  - Pain [Unknown]
  - Rash [Unknown]

NARRATIVE: CASE EVENT DATE: 2019
